FAERS Safety Report 21365227 (Version 1)
Quarter: 2022Q3

REPORT INFORMATION
  Report Type: Spontaneous
  Country: US (occurrence: US)
  Receive Date: 20220922
  Receipt Date: 20220922
  Transmission Date: 20221026
  Serious: Yes (Hospitalization, Other)
  Sender: FDA-Public Use
  Company Number: US-PHARMING-PHAUS2022000646

PATIENT

DRUGS (1)
  1. RUCONEST [Suspect]
     Active Substance: HUMAN C1-ESTERASE INHIBITOR
     Indication: Hereditary angioedema
     Dosage: 4200 IU, AS NEEDED
     Route: 042
     Dates: start: 20211208

REACTIONS (6)
  - Respiratory tract oedema [Unknown]
  - Urticaria [Unknown]
  - Anxiety [Unknown]
  - Injection site bruising [Unknown]
  - Vascular access site complication [Unknown]
  - Breast disorder [Unknown]
